FAERS Safety Report 15065802 (Version 1)
Quarter: 2018Q2

REPORT INFORMATION
  Report Type: Report from Study
  Country: None (occurrence: US)
  Receive Date: 20180626
  Receipt Date: 20180626
  Transmission Date: 20180711
  Serious: Yes (Hospitalization)
  Sender: FDA-Public Use
  Company Number: US-ABBVIE-18K-163-2399661-00

PATIENT
  Age: 40 Year
  Sex: Male

DRUGS (1)
  1. HUMIRA [Suspect]
     Active Substance: ADALIMUMAB
     Indication: COLITIS ULCERATIVE
     Route: 058
     Dates: end: 201803

REACTIONS (4)
  - Large intestine perforation [Unknown]
  - Infection [Unknown]
  - Haematochezia [Unknown]
  - Jaundice [Unknown]

NARRATIVE: CASE EVENT DATE: 201803
